FAERS Safety Report 4682772-4 (Version None)
Quarter: 2005Q2

REPORT INFORMATION
  Report Type: 
  Country: None (occurrence: None)
  Receive Date: 20050531
  Receipt Date: 20041108
  Transmission Date: 20051028
  Serious: Yes (Death)
  Sender: FDA-Public Use
  Company Number: 200418653US

PATIENT

DRUGS (1)
  1. LOVENOX [Suspect]
     Indication: ACUTE MYOCARDIAL INFARCTION
     Dosage: 1 MG/KG

REACTIONS (2)
  - GASTROINTESTINAL HAEMORRHAGE [None]
  - VOMITING [None]
